FAERS Safety Report 8503645-2 (Version None)
Quarter: 2012Q3

REPORT INFORMATION
  Report Type: 
  Country: None (occurrence: None)
  Receive Date: 20120711
  Receipt Date: 20120709
  Transmission Date: 20120928
  Serious: Yes (Hospitalization)
  Sender: FDA-Public Use
  Company Number: PHFR2012GB003910

PATIENT
  Sex: Male

DRUGS (1)
  1. CLOZARIL [Suspect]
     Route: 048

REACTIONS (1)
  - MENTAL IMPAIRMENT [None]
